FAERS Safety Report 9929889 (Version 1)
Quarter: 2014Q1

REPORT INFORMATION
  Report Type: Spontaneous
  Country: CA (occurrence: CA)
  Receive Date: 20140227
  Receipt Date: 20140227
  Transmission Date: 20141002
  Serious: Yes (Hospitalization)
  Sender: FDA-Public Use
  Company Number: CA-B.I. PHARMACEUTICALS,INC./RIDGEFIELD-2014-BI-08048CN

PATIENT
  Sex: Female

DRUGS (2)
  1. AFATINIB [Suspect]
     Indication: LUNG NEOPLASM MALIGNANT
     Route: 065
     Dates: start: 2013, end: 2013
  2. AFATINIB [Suspect]
     Route: 065
     Dates: start: 2013, end: 201402

REACTIONS (2)
  - Lung neoplasm malignant [Not Recovered/Not Resolved]
  - Skin toxicity [Recovered/Resolved]
